FAERS Safety Report 6661029-6 (Version None)
Quarter: 2010Q1

REPORT INFORMATION
  Report Type: 
  Country: None (occurrence: None)
  Receive Date: 20100331
  Receipt Date: 20100323
  Transmission Date: 20100710
  Serious: Yes (Hospitalization)
  Sender: FDA-Public Use
  Company Number: JP-ROCHE-683583

PATIENT
  Sex: Female

DRUGS (5)
  1. AVASTIN [Suspect]
     Indication: LARGE INTESTINE CARCINOMA
     Route: 041
  2. XELODA [Suspect]
     Indication: LARGE INTESTINE CARCINOMA
     Dosage: REPORTED DRUG: XELODA 300(CAPECITABINE), DOSE REDUCED.
     Route: 048
  3. XELODA [Suspect]
     Route: 048
  4. ELPLAT [Suspect]
     Indication: LARGE INTESTINE CARCINOMA
     Route: 041
  5. ELPLAT [Suspect]
     Route: 041

REACTIONS (1)
  - GASTRIC ULCER HAEMORRHAGE [None]
